FAERS Safety Report 5157133-4 (Version None)
Quarter: 2006Q4

REPORT INFORMATION
  Report Type: 
  Country: None (occurrence: None)
  Receive Date: 20061115
  Receipt Date: 20061030
  Transmission Date: 20070319
  Serious: Yes (Death)
  Sender: FDA-Public Use
  Company Number: 2006S1009525

PATIENT
  Age: 22 Year
  Sex: Male

DRUGS (8)
  1. CLOZAPINE [Suspect]
     Indication: SCHIZOPHRENIA
     Dosage: SEE IMAGE
     Route: 048
  2. CLOZAPINE [Suspect]
     Indication: SCHIZOPHRENIA
     Dosage: SEE IMAGE
     Route: 048
     Dates: start: 20061005, end: 20061009
  3. CLOZAPINE [Suspect]
     Indication: SCHIZOPHRENIA
     Dosage: SEE IMAGE
     Route: 048
     Dates: start: 20061005, end: 20061009
  4. CLOZAPINE [Suspect]
     Indication: SCHIZOPHRENIA
     Dosage: SEE IMAGE
     Route: 048
     Dates: start: 20061005, end: 20061009
  5. LITHIUM CARBONATE [Concomitant]
  6. TRAZODONE HCL [Concomitant]
  7. BENZTROPINE MESYLATE [Concomitant]
  8. CLONAZEPAM [Concomitant]

REACTIONS (1)
  - INTESTINAL OBSTRUCTION [None]
